FAERS Safety Report 4411108-9 (Version None)
Quarter: 2004Q2

REPORT INFORMATION
  Report Type: 
  Country: None (occurrence: None)
  Receive Date: 20040630
  Receipt Date: 20040422
  Transmission Date: 20050107
  Serious: No
  Sender: FDA-Public Use
  Company Number: 04P-163-0258303-00

PATIENT
  Sex: Female
  Weight: 63.5036 kg

DRUGS (6)
  1. HUMIRA [Suspect]
     Indication: RHEUMATOID ARTHRITIS
     Dosage: 40 MG, 1 IN 2 WK, SUBCUTANEOUS
     Route: 058
     Dates: start: 20040315
  2. HYDROCHLOROTHIAZIDE [Concomitant]
  3. CAPTOPRIL [Concomitant]
  4. INSULIN GLARGINE [Concomitant]
  5. INSULIN LISPRO [Concomitant]
  6. ACETYLSALICYLIC ACID [Concomitant]

REACTIONS (2)
  - BLOOD GLUCOSE DECREASED [None]
  - MENORRHAGIA [None]
